FAERS Safety Report 12944396 (Version 2)
Quarter: 2016Q4

REPORT INFORMATION
  Report Type: Report from Study
  Country: IT (occurrence: IT)
  Receive Date: 20161115
  Receipt Date: 20161123
  Transmission Date: 20170207
  Serious: Yes (Hospitalization)
  Sender: FDA-Public Use
  Company Number: IT-EISAI MEDICAL RESEARCH-EC-2016-022131

PATIENT
  Age: 46 Year
  Sex: Female

DRUGS (15)
  1. LENVIMA [Suspect]
     Active Substance: LENVATINIB
     Route: 048
     Dates: start: 20161018, end: 20161020
  2. LENVIMA [Suspect]
     Active Substance: LENVATINIB
     Route: 048
     Dates: start: 20161024
  3. TARGIN [Concomitant]
     Active Substance: NALOXONE HYDROCHLORIDE\OXYCODONE HYDROCHLORIDE
  4. PREGABALIN. [Concomitant]
     Active Substance: PREGABALIN
  5. EUTIROX [Concomitant]
     Active Substance: LEVOTHYROXINE SODIUM
  6. ORAMORPH [Concomitant]
     Active Substance: MORPHINE SULFATE
  7. METRONIDAZOLE. [Concomitant]
     Active Substance: METRONIDAZOLE
  8. LENVIMA [Suspect]
     Active Substance: LENVATINIB
     Route: 048
     Dates: start: 20160923, end: 20161014
  9. KETOROLAC [Concomitant]
     Active Substance: KETOROLAC\KETOROLAC TROMETHAMINE
  10. PANTOPRAZOLE [Concomitant]
     Active Substance: PANTOPRAZOLE SODIUM
  11. LENVIMA [Suspect]
     Active Substance: LENVATINIB
     Indication: BONE NEOPLASM
     Route: 048
     Dates: start: 20160602, end: 20160922
  12. TACHIPIRINA [Concomitant]
     Active Substance: ACETAMINOPHEN
  13. ENALAPRIL [Concomitant]
     Active Substance: ENALAPRIL
  14. ROCEFIN [Concomitant]
     Active Substance: CEFTRIAXONE SODIUM
  15. DELALUTIN [Concomitant]
     Active Substance: HYDROXYPROGESTERONE CAPROATE

REACTIONS (2)
  - Hypertension [Recovered/Resolved]
  - Epistaxis [Recovered/Resolved]

NARRATIVE: CASE EVENT DATE: 20161020
